FAERS Safety Report 11459668 (Version 2)
Quarter: 2015Q4

REPORT INFORMATION
  Report Type: Spontaneous
  Country: US (occurrence: US)
  Receive Date: 20150904
  Receipt Date: 20151125
  Transmission Date: 20160304
  Serious: Yes (Hospitalization)
  Sender: FDA-Public Use
  Company Number: US-ENDO PHARMACEUTICALS INC.-2015-002661

PATIENT
  Age: 71 Year
  Sex: Male
  Weight: 76.73 kg

DRUGS (2)
  1. TESTOPEL [Suspect]
     Active Substance: TESTOSTERONE
     Indication: ANDROGEN REPLACEMENT THERAPY
     Dosage: USED ^ONCE^
     Route: 058
     Dates: start: 20130703, end: 20131002
  2. TESTOSTERONE CYPIONATE. [Suspect]
     Active Substance: TESTOSTERONE CYPIONATE
     Indication: ANDROGEN REPLACEMENT THERAPY
     Dosage: USED ^TWICE^
     Route: 065
     Dates: start: 20131002, end: 20140121

REACTIONS (4)
  - Thrombosis [Unknown]
  - Injection site swelling [Unknown]
  - Myocardial infarction [Unknown]
  - Acute coronary syndrome [Unknown]

NARRATIVE: CASE EVENT DATE: 2013
